FAERS Safety Report 24647127 (Version 1)
Quarter: 2024Q4

REPORT INFORMATION
  Report Type: Spontaneous
  Country: DZ (occurrence: DZ)
  Receive Date: 20241121
  Receipt Date: 20241121
  Transmission Date: 20250114
  Serious: Yes (Other)
  Sender: PFIZER
  Company Number: DZ-PFIZER INC-202400305140

PATIENT

DRUGS (1)
  1. CRIZOTINIB [Suspect]
     Active Substance: CRIZOTINIB
     Indication: Lung cancer metastatic
     Dosage: UNK

REACTIONS (1)
  - Myocarditis [Unknown]
